FAERS Safety Report 18949021 (Version 4)
Quarter: 2022Q2

REPORT INFORMATION
  Report Type: Report from Study
  Country: GB (occurrence: GB)
  Receive Date: 20210227
  Receipt Date: 20220613
  Transmission Date: 20220721
  Serious: Yes (Other)
  Sender: FDA-Public Use
  Company Number: NVSC2021GB042538

PATIENT
  Sex: Female

DRUGS (1)
  1. ERELZI [Suspect]
     Active Substance: ETANERCEPT-SZZS
     Indication: Rheumatoid arthritis
     Dosage: 50 MG, QW
     Route: 058

REACTIONS (4)
  - Pre-eclampsia [Unknown]
  - Normal newborn [Unknown]
  - Maternal exposure during pregnancy [Unknown]
  - Product dose omission issue [Unknown]
